FAERS Safety Report 25393536 (Version 1)
Quarter: 2025Q2

REPORT INFORMATION
  Report Type: Spontaneous
  Country: US (occurrence: US)
  Receive Date: 20250604
  Receipt Date: 20250604
  Transmission Date: 20250716
  Serious: No
  Sender: SUNOVION
  Company Number: US-SMPA-2025SPA005858AA

PATIENT

DRUGS (1)
  1. ORGOVYX [Suspect]
     Active Substance: RELUGOLIX
     Indication: Prostate cancer stage IV
     Route: 048
     Dates: start: 20240618

REACTIONS (4)
  - Muscular weakness [Unknown]
  - Muscle atrophy [Unknown]
  - Gait disturbance [Unknown]
  - Asthenia [Unknown]
